FAERS Safety Report 6329080-3 (Version None)
Quarter: 2009Q3

REPORT INFORMATION
  Report Type: 
  Country: None (occurrence: None)
  Receive Date: 20090826
  Receipt Date: 20090821
  Transmission Date: 20100115
  Serious: Yes (Other)
  Sender: FDA-Public Use
  Company Number: PHHY2009CH35243

PATIENT
  Age: 55 Year
  Sex: Male

DRUGS (2)
  1. RASILEZ [Suspect]
     Indication: HYPERTENSION
     Dosage: 150 MG/DAY
     Dates: start: 20090317
  2. RASILEZ [Suspect]
     Dosage: UNK
     Dates: start: 20090616

REACTIONS (5)
  - ANGINA PECTORIS [None]
  - CARDIAC ARREST [None]
  - OESOPHAGEAL PAIN [None]
  - TACHYCARDIA [None]
  - THROAT TIGHTNESS [None]
